FAERS Safety Report 10342887 (Version 1)
Quarter: 2014Q3

REPORT INFORMATION
  Report Type: Spontaneous
  Country: US (occurrence: None)
  Receive Date: 20140723
  Receipt Date: 20140723
  Transmission Date: 20150326
  Serious: Yes (Hospitalization)
  Sender: FDA-Public Use
  Company Number: US-H14001-14-00268

PATIENT
  Age: 65 Year
  Sex: Male

DRUGS (6)
  1. FLUTICAZONE/SALMETEROL [Concomitant]
  2. WARFARIN [Concomitant]
     Active Substance: WARFARIN
  3. LANSOPRAZOLE. [Concomitant]
     Active Substance: LANSOPRAZOLE
  4. ONDANSETRON [Suspect]
     Active Substance: ONDANSETRON
     Indication: PRODUCT USED FOR UNKNOWN INDICATION
  5. CISPLATIN. [Concomitant]
     Active Substance: CISPLATIN
  6. TIOTROPIUM BROMIDE [Concomitant]
     Active Substance: TIOTROPIUM BROMIDE

REACTIONS (6)
  - Epistaxis [None]
  - Blood pressure decreased [None]
  - Blood creatinine increased [None]
  - Haemoglobin decreased [None]
  - International normalised ratio increased [None]
  - Drug interaction [None]
